FAERS Safety Report 8196400-7 (Version None)
Quarter: 2012Q1

REPORT INFORMATION
  Report Type: 
  Country: None (occurrence: None)
  Receive Date: 20120309
  Receipt Date: 20120302
  Transmission Date: 20120608
  Serious: Yes (Hospitalization, Other)
  Sender: FDA-Public Use
  Company Number: US-ABBOTT-12P-163-0911744-00

PATIENT
  Sex: Male
  Weight: 127.12 kg

DRUGS (6)
  1. HYZAAR [Concomitant]
     Indication: HYPERTENSION
  2. HUMIRA [Suspect]
     Dates: start: 20110501, end: 20110501
  3. VITAMIN TAB [Concomitant]
     Indication: VITAMIN SUPPLEMENTATION
  4. WARFARIN SODIUM [Concomitant]
     Indication: ANTICOAGULANT THERAPY
  5. HUMIRA [Suspect]
     Indication: PSORIASIS
     Route: 058
     Dates: start: 20080101, end: 20110301
  6. HUMIRA [Suspect]
     Dates: start: 20110801

REACTIONS (14)
  - MUSCULOSKELETAL PAIN [None]
  - NECK PAIN [None]
  - MUSCLE DISORDER [None]
  - SOMNOLENCE [None]
  - ROAD TRAFFIC ACCIDENT [None]
  - MUSCULOSKELETAL CHEST PAIN [None]
  - COUGH [None]
  - LOSS OF CONSCIOUSNESS [None]
  - PNEUMONIA [None]
  - BALANCE DISORDER [None]
  - PAIN IN EXTREMITY [None]
  - BACK PAIN [None]
  - ARTHRALGIA [None]
  - INTERVERTEBRAL DISC PROTRUSION [None]
